FAERS Safety Report 9614591 (Version 1)
Quarter: 2013Q4

REPORT INFORMATION
  Report Type: Spontaneous
  Country: FR (occurrence: FR)
  Receive Date: 20131011
  Receipt Date: 20131011
  Transmission Date: 20140711
  Serious: Yes (Hospitalization)
  Sender: FDA-Public Use
  Company Number: PHHY2013FR113885

PATIENT
  Age: 85 Year
  Sex: Male

DRUGS (5)
  1. TEGRETOL LP [Suspect]
     Indication: EPILEPSY
     Dosage: 200 MG, BID
     Route: 048
  2. COLCHIMAX /FRA/ [Suspect]
     Indication: GOUT
  3. ATORVASTATIN [Suspect]
     Dosage: 10 MG, QD
     Route: 048
  4. SPIRONOLACTONE ALTIZIDE ARROW [Suspect]
     Indication: HYPERTENSION
     Dosage: UNK UKN, QD
  5. LEVOTHYROX [Suspect]
     Indication: HYPOTHYROIDISM
     Dosage: 75 UG, QD
     Route: 048

REACTIONS (4)
  - Malaise [Recovered/Resolved]
  - Vomiting [Recovered/Resolved]
  - Fatigue [Recovered/Resolved]
  - Nausea [Recovered/Resolved]
